FAERS Safety Report 4632715-4 (Version None)
Quarter: 2005Q2

REPORT INFORMATION
  Report Type: 
  Country: None (occurrence: None)
  Receive Date: 20050325
  Receipt Date: 20041217
  Transmission Date: 20051028
  Serious: No
  Sender: FDA-Public Use
  Company Number: USA041286514

PATIENT
  Age: 63 Year
  Sex: Female

DRUGS (6)
  1. FORTEO [Suspect]
     Indication: OSTEOPOROSIS
     Dates: start: 20041007
  2. PLAQUENIL [Concomitant]
  3. THYROID TAB [Concomitant]
  4. CALCIUM GLUCONATE [Concomitant]
  5. COUMADIN [Concomitant]
  6. VICODIN [Concomitant]

REACTIONS (4)
  - BACK PAIN [None]
  - FALL [None]
  - FATIGUE [None]
  - LIMB INJURY [None]
